FAERS Safety Report 16877564 (Version 1)
Quarter: 2019Q4

REPORT INFORMATION
  Report Type: Spontaneous
  Country: US (occurrence: US)
  Receive Date: 20191002
  Receipt Date: 20191002
  Transmission Date: 20200122
  Serious: Yes (Hospitalization)
  Sender: FDA-Public Use
  Company Number: None

PATIENT
  Age: 53 Year
  Sex: Male
  Weight: 96.3 kg

DRUGS (10)
  1. LIDOCAINE. [Suspect]
     Active Substance: LIDOCAINE
     Indication: POSTOPERATIVE ANALGESIA
     Route: 041
     Dates: start: 20181214, end: 20181214
  2. MAGNESIUM SULFATE 4G [Concomitant]
     Dates: start: 20181214, end: 20181214
  3. GABAPENTIN 600MG [Concomitant]
     Active Substance: GABAPENTIN
     Dates: start: 20181214, end: 20181214
  4. DEXAMETHASONE 8MG [Concomitant]
     Dates: start: 20181214, end: 20181214
  5. ONDANSETRON 4MG [Concomitant]
     Active Substance: ONDANSETRON
     Dates: start: 20181214, end: 20181214
  6. CEFOXITIN 2G [Concomitant]
     Dates: start: 20181214, end: 20181214
  7. HEPARIN 5,000 UNITS [Concomitant]
     Dates: start: 20181214, end: 20181214
  8. KETAMINE 200MG [Concomitant]
     Dates: start: 20181214, end: 20181214
  9. ACETAMINOPHEN 1G [Concomitant]
     Dates: start: 20181214, end: 20181214
  10. ALVIMOPAN 12MG [Concomitant]
     Dates: start: 20181214, end: 20181214

REACTIONS (1)
  - Diplopia [None]

NARRATIVE: CASE EVENT DATE: 20181214
